FAERS Safety Report 6844929-3 (Version None)
Quarter: 2010Q3

REPORT INFORMATION
  Report Type: 
  Country: None (occurrence: None)
  Receive Date: 20100715
  Receipt Date: 20100706
  Transmission Date: 20110219
  Serious: Yes (Other)
  Sender: FDA-Public Use
  Company Number: US-WYE-H14994610

PATIENT
  Sex: Female

DRUGS (2)
  1. PRISTIQ [Suspect]
     Indication: DEPRESSION
     Route: 048
     Dates: start: 20090101
  2. ELAVIL [Suspect]
     Indication: INSOMNIA

REACTIONS (9)
  - ANXIETY [None]
  - BRAIN NEOPLASM [None]
  - CAROTID ARTERY OCCLUSION [None]
  - DRY MOUTH [None]
  - FATIGUE [None]
  - HYPERSOMNIA [None]
  - INSOMNIA [None]
  - LOSS OF CONSCIOUSNESS [None]
  - PANIC ATTACK [None]
